FAERS Safety Report 4875785-0 (Version None)
Quarter: 2006Q1

REPORT INFORMATION
  Report Type: 
  Country: None (occurrence: None)
  Receive Date: 20060104
  Receipt Date: 20051215
  Transmission Date: 20060701
  Serious: Yes (Hospitalization)
  Sender: FDA-Public Use
  Company Number: 220561

PATIENT

DRUGS (4)
  1. AVASTIN [Suspect]
     Indication: COLORECTAL CANCER METASTATIC
     Dosage: 510 MG, INTRAVENOUS
     Route: 042
     Dates: start: 20051201
  2. XELODA [Suspect]
     Indication: COLORECTAL CANCER METASTATIC
     Dosage: 3300 MG, QD, ORAL
     Route: 048
     Dates: start: 20051201
  3. NEXIUM [Concomitant]
  4. ACTONEL [Concomitant]

REACTIONS (4)
  - ARTERIOSPASM CORONARY [None]
  - INTESTINAL OBSTRUCTION [None]
  - METASTASES TO PERITONEUM [None]
  - PULMONARY EMBOLISM [None]
